FAERS Safety Report 5052649-3 (Version None)
Quarter: 2006Q3

REPORT INFORMATION
  Report Type: 
  Country: None (occurrence: None)
  Receive Date: 20060712
  Receipt Date: 20060712
  Transmission Date: 20061208
  Serious: Yes (Other)
  Sender: FDA-Public Use
  Company Number: None

PATIENT
  Age: 39 Year
  Sex: Male
  Weight: 129.7 kg

DRUGS (4)
  1. LIDODERM [Suspect]
  2. CLOTRIMAZOLE [Concomitant]
  3. PREDNISONE [Concomitant]
  4. HYDROXYZINE PAMOATE [Concomitant]

REACTIONS (1)
  - RASH [None]
